FAERS Safety Report 15506696 (Version 1)
Quarter: 2018Q4

REPORT INFORMATION
  Report Type: Spontaneous
  Country: TR (occurrence: TR)
  Receive Date: 20181016
  Receipt Date: 20181016
  Transmission Date: 20190205
  Serious: Yes (Other)
  Sender: FDA-Public Use
  Company Number: PHHY2018TR126054

PATIENT
  Age: 66 Year
  Sex: Female

DRUGS (2)
  1. ONEPTUS [Suspect]
     Active Substance: SACUBITRIL\VALSARTAN
     Indication: CARDIAC FAILURE
     Dosage: 100 MG, BID
     Route: 065
     Dates: start: 201709
  2. ONEPTUS [Suspect]
     Active Substance: SACUBITRIL\VALSARTAN
     Dosage: 100 MG, BID (AS HALF TABLET AT THE MORNING AND HALF TABLET AT THE EVENING)
     Route: 065
     Dates: start: 201709

REACTIONS (6)
  - Fatigue [Unknown]
  - Drug ineffective [Unknown]
  - Gait inability [Unknown]
  - Wrong technique in product usage process [Unknown]
  - Dyspnoea [Unknown]
  - Myocardial infarction [Unknown]
